FAERS Safety Report 11455787 (Version 1)
Quarter: 2015Q3

REPORT INFORMATION
  Report Type: Spontaneous
  Country: IT (occurrence: IT)
  Receive Date: 20150831
  Receipt Date: 20150831
  Transmission Date: 20151125
  Serious: Yes (Other)
  Sender: FDA-Public Use
  Company Number: IT-GLAXOSMITHKLINE-IT2015GSK124343

PATIENT
  Age: 25 Year
  Sex: Male

DRUGS (1)
  1. ACICLOVIR [Suspect]
     Active Substance: ACYCLOVIR
     Indication: RELAPSING-REMITTING MULTIPLE SCLEROSIS
     Dosage: 200 MG, BID
     Route: 048

REACTIONS (5)
  - Albuminuria [Recovered/Resolved]
  - Glycosuria [Recovered/Resolved]
  - Hypouricaemia [Recovered/Resolved]
  - Fanconi syndrome acquired [Recovered/Resolved]
  - Hypophosphataemia [Recovered/Resolved]
